FAERS Safety Report 24109403 (Version 4)
Quarter: 2024Q4

REPORT INFORMATION
  Report Type: Report from Study
  Country: CO (occurrence: CO)
  Receive Date: 20240718
  Receipt Date: 20241021
  Transmission Date: 20250114
  Serious: Yes (Hospitalization)
  Sender: ASTELLAS
  Company Number: CO-ASTELLAS-2024US020165

PATIENT
  Age: 76 Year
  Sex: Male
  Weight: 167 kg

DRUGS (4)
  1. ENZALUTAMIDE [Suspect]
     Active Substance: ENZALUTAMIDE
     Indication: Hormone-refractory prostate cancer
     Dosage: 160 MG, ONCE DAILY-ONGOING
     Route: 048
     Dates: start: 20240618
  2. ENZALUTAMIDE [Suspect]
     Active Substance: ENZALUTAMIDE
     Indication: Prostate cancer metastatic
     Dosage: 80 MG, EVERY 12 HOURS (1 CAPSULE IN THE MORNING AND 1 CAPSULE AT NIGHT)
     Route: 065
  3. LOSARTAN [Concomitant]
     Active Substance: LOSARTAN
     Indication: Product used for unknown indication
     Dosage: UNK UNK, UNKNOWN FREQ.
     Route: 065
  4. Calcio [Concomitant]
     Indication: Product used for unknown indication
     Dosage: UNK UNK, UNKNOWN FREQ.
     Route: 065

REACTIONS (6)
  - Abdominal pain upper [Recovered/Resolved]
  - Condition aggravated [Recovered/Resolved]
  - Vomiting [Recovered/Resolved]
  - Renal mass [Recovered/Resolved]
  - Cholelithiasis [Recovered/Resolved]
  - Inappropriate schedule of product administration [Unknown]

NARRATIVE: CASE EVENT DATE: 20240706
